FAERS Safety Report 18320752 (Version 1)
Quarter: 2020Q3

REPORT INFORMATION
  Report Type: Spontaneous
  Country: US (occurrence: US)
  Receive Date: 20200928
  Receipt Date: 20200928
  Transmission Date: 20201103
  Serious: Yes (Hospitalization)
  Sender: FDA-Public Use
  Company Number: US-FRESENIUS MEDICAL CARE RENAL THERAPIES GROUP-FMC-2009-001092

PATIENT
  Age: 62 Year
  Sex: Male
  Weight: 53.5 kg

DRUGS (3)
  1. CEFEPIME [Concomitant]
     Active Substance: CEFEPIME HYDROCHLORIDE
     Dosage: 1000MG IP DAILY WITH A 6?HOUR DWELL FOR 14 DAYS
  2. DELFLEX WITH DEXTROSE 1.5% LOW MAGNESIUM LOW CALCIUM [Suspect]
     Active Substance: CALCIUM CHLORIDE\DEXTROSE\MAGNESIUM CHLORIDE\SODIUM CHLORIDE\SODIUM LACTATE
     Indication: END STAGE RENAL DISEASE
     Dosage: TIDAL 5 EXCHANGES, FILL VOLUME 1600 ML, DWELL TIME 1 HOUR 20 MINS, TIDAL DRAIN 90% OF FILL VOLUME, N
     Route: 033
  3. VANCOMYCIN [Concomitant]
     Active Substance: VANCOMYCIN
     Dosage: 750MG IP EVERY 3 DAYS WITH A 6?HOUR DWELL

REACTIONS (1)
  - Peritonitis [Unknown]
